FAERS Safety Report 11186076 (Version 1)
Quarter: 2015Q2

REPORT INFORMATION
  Report Type: Report from Study
  Country: US (occurrence: US)
  Receive Date: 20150612
  Receipt Date: 20150612
  Transmission Date: 20150821
  Serious: Yes (Death, Life-Threatening, Hospitalization, Disabling, Other)
  Sender: FDA-Public Use
  Company Number: US-ASTELLAS-2015US002755

PATIENT
  Age: 58 Year
  Sex: Male

DRUGS (57)
  1. VALACYCLOVIR [Concomitant]
     Active Substance: VALACYCLOVIR HYDROCHLORIDE
     Indication: ANTIVIRAL PROPHYLAXIS
     Route: 048
     Dates: start: 20141223, end: 20150117
  2. MEROPENEM. [Concomitant]
     Active Substance: MEROPENEM
     Indication: FEBRILE NEUTROPENIA
     Dosage: 1 G EVERY 8 HOURS
     Route: 042
     Dates: start: 20141227, end: 20150104
  3. TRIAMCINOLONE [Concomitant]
     Active Substance: TRIAMCINOLONE
     Indication: PALMAR-PLANTAR ERYTHRODYSAESTHESIA SYNDROME
     Dosage: 1-APPLICATION, THRICE DAILY
     Route: 061
     Dates: start: 20141229, end: 20150113
  4. POTASSIUM PHOSPHATE [Concomitant]
     Active Substance: POTASSIUM PHOSPHATE
     Indication: HYPOPHOSPHATAEMIA
     Route: 042
     Dates: start: 20141231, end: 20141231
  5. COLACE [Concomitant]
     Active Substance: DOCUSATE SODIUM
     Indication: CONSTIPATION
     Route: 048
     Dates: start: 20150102, end: 20150103
  6. POTASSIUM CHLORIDE. [Concomitant]
     Active Substance: POTASSIUM CHLORIDE
     Route: 042
     Dates: start: 20150107, end: 20150107
  7. FIDAXOMICIN [Suspect]
     Active Substance: FIDAXOMICIN
     Indication: PROPHYLAXIS
     Dosage: 1 TABLET, ONCE DAILY
     Route: 048
     Dates: start: 20141215, end: 20150103
  8. FIDAXOMICIN [Suspect]
     Active Substance: FIDAXOMICIN
     Dosage: 1 TABLET, ONCE DAILY
     Route: 048
     Dates: start: 20150105, end: 20150117
  9. CYMBALTA [Concomitant]
     Active Substance: DULOXETINE HYDROCHLORIDE
     Indication: DEPRESSION
     Route: 048
     Dates: start: 20140101, end: 20150117
  10. NYSTATIN. [Concomitant]
     Active Substance: NYSTATIN
     Indication: RASH
     Dosage: 1-APPLICATION, THRICE DAILY
     Route: 061
     Dates: start: 20141230, end: 20150104
  11. BENADRYL [Concomitant]
     Active Substance: DIPHENHYDRAMINE HYDROCHLORIDE
     Indication: PREMEDICATION
     Dosage: 25 MG ONCE A DAY, AS NEEDED
     Route: 048
     Dates: start: 20141229, end: 20150105
  12. AMLODIPINE [Concomitant]
     Active Substance: AMLODIPINE BESYLATE
     Indication: HYPERTENSION
     Route: 048
     Dates: start: 20141231, end: 20150114
  13. ZOFRAN                             /00955301/ [Concomitant]
     Active Substance: ONDANSETRON HYDROCHLORIDE
     Indication: PREMEDICATION
  14. MOXIFLOXACIN [Concomitant]
     Active Substance: MOXIFLOXACIN
     Indication: PNEUMONIA
     Route: 048
     Dates: start: 20150108, end: 20150114
  15. GABAPENTIN. [Concomitant]
     Active Substance: GABAPENTIN
     Indication: BACK PAIN
     Dosage: 100 MG,AT BEDTIME
     Route: 048
     Dates: start: 20141229, end: 20150104
  16. OXYCODONE [Concomitant]
     Active Substance: OXYCODONE
     Indication: PALMAR-PLANTAR ERYTHRODYSAESTHESIA SYNDROME
  17. COMPAZINE [Concomitant]
     Active Substance: PROCHLORPERAZINE MALEATE
     Indication: NAUSEA
     Dosage: 10 MG, EVERY SIX HOURS AS NEEDED
     Route: 042
     Dates: start: 20141215, end: 20150103
  18. SYMBICORT [Concomitant]
     Active Substance: BUDESONIDE\FORMOTEROL FUMARATE DIHYDRATE
     Indication: ASTHMA
     Dosage: 1-PUFF, TWICE DAILY
     Route: 055
     Dates: start: 20040701, end: 20150109
  19. LASIX [Concomitant]
     Active Substance: FUROSEMIDE
     Indication: FLUID OVERLOAD
     Route: 042
     Dates: start: 20141226, end: 20150105
  20. FILGRASTIM [Concomitant]
     Active Substance: FILGRASTIM
     Indication: PRODUCT USED FOR UNKNOWN INDICATION
     Route: 058
     Dates: start: 20141229, end: 20150105
  21. POTASSIUM PHOSPHATE [Concomitant]
     Active Substance: POTASSIUM PHOSPHATE
     Route: 042
     Dates: start: 20150105, end: 20150105
  22. SENNOSIDES A+B [Concomitant]
     Active Substance: SENNOSIDES A AND B
     Indication: CONSTIPATION
     Route: 048
     Dates: start: 20150102, end: 20150103
  23. TUMS                               /00193601/ [Concomitant]
     Active Substance: CALCIUM CARBONATE\MAGNESIUM CARBONATE\MAGNESIUM TRISILICATE
     Indication: DYSPEPSIA
     Route: 048
     Dates: start: 20150106, end: 20150106
  24. BACTRIM DS [Concomitant]
     Active Substance: SULFAMETHOXAZOLE\TRIMETHOPRIM
     Indication: ANTIFUNGAL PROPHYLAXIS
     Dosage: 1-TABLET-BID ON SATS, TWICE DAILY
     Route: 048
     Dates: start: 20150110
  25. COMBIVENT [Concomitant]
     Active Substance: ALBUTEROL SULFATE\IPRATROPIUM BROMIDE
     Indication: WHEEZING
     Dosage: 2-PUFF-EVERY SIX HOURS AS NEEDED, UNKNOWN FREQ.
     Route: 055
     Dates: start: 20040701, end: 20150109
  26. MAGNESIUM SULFATE. [Concomitant]
     Active Substance: MAGNESIUM SULFATE
     Indication: HYPOMAGNESAEMIA
     Route: 042
     Dates: start: 20141215, end: 20150122
  27. MONTELUKAST [Concomitant]
     Active Substance: MONTELUKAST SODIUM
     Indication: ASTHMA
     Dosage: 10 MG, AT BED TIME
     Route: 048
     Dates: start: 20040701, end: 20150109
  28. NYSTATIN. [Concomitant]
     Active Substance: NYSTATIN
     Indication: ORAL CANDIDIASIS
     Dosage: 5-ML-FOUR TIMES DAILY AFTER MEALS + AT HS, UNKNOWN FREQ.
     Route: 050
     Dates: start: 20141228, end: 20150107
  29. ZOFRAN                             /00955301/ [Concomitant]
     Active Substance: ONDANSETRON HYDROCHLORIDE
     Indication: NAUSEA
     Route: 042
     Dates: start: 20150103, end: 20150103
  30. OXYCODONE [Concomitant]
     Active Substance: OXYCODONE
     Indication: BACK PAIN
     Route: 048
     Dates: start: 20141215, end: 20150113
  31. HEPARIN FLUSH [Concomitant]
     Indication: CATHETER MANAGEMENT
     Dosage: 50 U, AS NEEDED
     Route: 050
     Dates: start: 20141208
  32. BIOTENE                            /03475601/ [Concomitant]
     Indication: MUCOSAL INFLAMMATION
  33. TYLENOL [Concomitant]
     Active Substance: ACETAMINOPHEN
     Indication: PREMEDICATION
     Dosage: 650 MG,QD AS NEEDED
     Route: 048
     Dates: start: 20141229, end: 20150105
  34. POTASSIUM PHOSPHATE [Concomitant]
     Active Substance: POTASSIUM PHOSPHATE
     Route: 042
     Dates: start: 20150106, end: 20150106
  35. ZOFRAN                             /00955301/ [Concomitant]
     Active Substance: ONDANSETRON HYDROCHLORIDE
     Indication: CHEMOTHERAPY
     Route: 048
     Dates: start: 20141219, end: 20141220
  36. POTASSIUM CHLORIDE. [Concomitant]
     Active Substance: POTASSIUM CHLORIDE
     Indication: PRODUCT USED FOR UNKNOWN INDICATION
     Route: 042
     Dates: start: 20150105, end: 20150105
  37. TACROLIMUS. [Suspect]
     Active Substance: TACROLIMUS
     Indication: PROPHYLAXIS AGAINST GRAFT VERSUS HOST DISEASE
     Dosage: 0.04-0.115-MCG/HR-CONTINUOUS.
     Route: 042
     Dates: start: 20141220, end: 20150103
  38. TACROLIMUS. [Suspect]
     Active Substance: TACROLIMUS
     Route: 048
     Dates: start: 20150105, end: 20150112
  39. OXYCODONE [Concomitant]
     Active Substance: OXYCODONE
     Indication: HEADACHE
     Route: 048
     Dates: start: 20141228, end: 20150105
  40. OXYCODONE [Concomitant]
     Active Substance: OXYCODONE
     Indication: OESOPHAGITIS
  41. BIOTENE                            /03475601/ [Concomitant]
     Indication: DENTAL DISORDER PROPHYLAXIS
     Dosage: 30 ML, QID ONCE DAILY
     Route: 050
     Dates: start: 20141208
  42. PANTOPRAZOLE [Concomitant]
     Active Substance: PANTOPRAZOLE SODIUM
     Indication: DENTAL DISORDER PROPHYLAXIS
     Route: 048
     Dates: start: 20141216, end: 20150112
  43. TOLTERODINE [Concomitant]
     Active Substance: TOLTERODINE
     Indication: BLADDER SPASM
     Route: 048
     Dates: start: 20141221, end: 20150109
  44. PHENYLEPHRINE                      /00116302/ [Concomitant]
     Indication: PROPHYLAXIS
     Dosage: 1-SPRAY-EVERY 4 HOURS AS NEEDED
     Route: 045
     Dates: start: 20150103, end: 20150103
  45. COMBIVENT [Concomitant]
     Active Substance: ALBUTEROL SULFATE\IPRATROPIUM BROMIDE
     Indication: ASTHMA
  46. FOLIC ACID. [Concomitant]
     Active Substance: FOLIC ACID
     Indication: SUPPLEMENTATION THERAPY
     Route: 048
     Dates: start: 20141223
  47. TRIAMCINOLONE ACETONIDE. [Concomitant]
     Active Substance: TRIAMCINOLONE ACETONIDE
     Indication: PALMAR-PLANTAR ERYTHRODYSAESTHESIA SYNDROME
     Dosage: 1-APPLICATION, THRICE DAILY
     Route: 061
     Dates: start: 20141227, end: 20141229
  48. POTASSIUM PHOSPHATE [Concomitant]
     Active Substance: POTASSIUM PHOSPHATE
     Route: 042
     Dates: start: 20150104, end: 20150104
  49. ZOSYN [Concomitant]
     Active Substance: PIPERACILLIN SODIUM\TAZOBACTAM SODIUM
     Indication: PNEUMONIA
     Dosage: 4.5 G Q6H, UNKNOWN FREQ.
     Route: 042
     Dates: start: 20150104, end: 20150107
  50. OXYCODONE [Concomitant]
     Active Substance: OXYCODONE
     Indication: MUCOSAL INFLAMMATION
     Route: 048
     Dates: start: 20150105, end: 20150107
  51. URSODIOL. [Concomitant]
     Active Substance: URSODIOL
     Indication: PROPHYLAXIS
     Dosage: 300 MG, EVERY 4 HOURS THRICE DAILY
     Route: 048
     Dates: start: 20141215
  52. BIOTENE                            /03475601/ [Concomitant]
     Indication: OESOPHAGITIS
  53. FLUCONAZOLE. [Concomitant]
     Active Substance: FLUCONAZOLE
     Indication: ANTIFUNGAL PROPHYLAXIS
     Route: 048
     Dates: start: 20141223, end: 20150119
  54. MULTIVITAMIN                       /00097801/ [Concomitant]
     Active Substance: VITAMINS
     Indication: SUPPLEMENTATION THERAPY
     Route: 048
     Dates: start: 20141223, end: 20150122
  55. PHYTONADIONE. [Concomitant]
     Active Substance: PHYTONADIONE
     Indication: PROPHYLAXIS
     Dosage: 10 MG, (EVERY MONDAY AND THURSDAY) UNKNOWN FREQ.
     Route: 058
     Dates: start: 20141229, end: 20150105
  56. POTASSIUM PHOSPHATE [Concomitant]
     Active Substance: POTASSIUM PHOSPHATE
     Route: 042
     Dates: start: 20150101, end: 20150102
  57. VANCOMYCIN [Concomitant]
     Active Substance: VANCOMYCIN
     Indication: PNEUMONIA
     Route: 042
     Dates: start: 20150104, end: 20150107

REACTIONS (1)
  - Non-Hodgkin^s lymphoma recurrent [Fatal]

NARRATIVE: CASE EVENT DATE: 20150113
